FAERS Safety Report 11064735 (Version 1)
Quarter: 2015Q2

REPORT INFORMATION
  Report Type: Spontaneous
  Country: CH (occurrence: CH)
  Receive Date: 20150424
  Receipt Date: 20150424
  Transmission Date: 20150821
  Serious: Yes (Hospitalization)
  Sender: FDA-Public Use
  Company Number: CH-ASTRAZENECA-2015SE35919

PATIENT
  Age: 69 Year
  Sex: Female
  Weight: 98 kg

DRUGS (5)
  1. TOREM [Concomitant]
     Active Substance: TORSEMIDE
     Indication: PRODUCT USED FOR UNKNOWN INDICATION
     Route: 048
  2. CLARITHROMYCIN. [Concomitant]
     Active Substance: CLARITHROMYCIN
  3. COSAAR PLUS [Concomitant]
     Active Substance: HYDROCHLOROTHIAZIDE\LOSARTAN
     Indication: HYPERTENSION
     Route: 048
  4. ESOMEPRAZOLE [Concomitant]
     Active Substance: ESOMEPRAZOLE
  5. OMEPRAZOL [Suspect]
     Active Substance: OMEPRAZOLE
     Indication: EPIGASTRIC DISCOMFORT
     Route: 048
     Dates: start: 20150201, end: 201502

REACTIONS (4)
  - Biopsy skin abnormal [Unknown]
  - Type III immune complex mediated reaction [Unknown]
  - Hypersensitivity vasculitis [Recovering/Resolving]
  - Pruritus [Recovering/Resolving]

NARRATIVE: CASE EVENT DATE: 20150210
